FAERS Safety Report 15658233 (Version 3)
Quarter: 2019Q2

REPORT INFORMATION
  Report Type: Spontaneous
  Country: US (occurrence: US)
  Receive Date: 20181126
  Receipt Date: 20190404
  Transmission Date: 20190711
  Serious: Yes (Hospitalization)
  Sender: FDA-Public Use
  Company Number: US-PFIZER INC-2018478819

PATIENT
  Age: 12 Year
  Sex: Male
  Weight: 45 kg

DRUGS (6)
  1. KETAMINE HCL [Concomitant]
     Active Substance: KETAMINE HYDROCHLORIDE
     Indication: SEDATION
     Dosage: 60 MG, UNK, (1.33 MGKG^-1 AS A SINGLE BOLUS, (+160 MIN FROM MORPHINE ADMINISTRATION OVER 30 S)
     Route: 042
  2. ACETAMINOPHEN. [Concomitant]
     Active Substance: ACETAMINOPHEN
     Indication: TIBIA FRACTURE
     Dosage: 650 MG, UNK, (ENTERAL)
  3. ACETAMINOPHEN. [Concomitant]
     Active Substance: ACETAMINOPHEN
     Indication: FIBULA FRACTURE
  4. ONDANSETRON [Concomitant]
     Active Substance: ONDANSETRON
     Indication: TIBIA FRACTURE
     Dosage: 4 MG, UNK
     Route: 042
  5. ONDANSETRON [Concomitant]
     Active Substance: ONDANSETRON
     Indication: FIBULA FRACTURE
  6. MORPHINE SULFATE. [Suspect]
     Active Substance: MORPHINE SULFATE
     Indication: ANALGESIC THERAPY
     Dosage: 2 MG, UNK
     Route: 042

REACTIONS (1)
  - Sleep apnoea syndrome [Recovered/Resolved]
